FAERS Safety Report 6650624-6 (Version None)
Quarter: 2010Q1

REPORT INFORMATION
  Report Type: 
  Country: None (occurrence: None)
  Receive Date: 20100325
  Receipt Date: 20100311
  Transmission Date: 20100710
  Serious: No
  Sender: FDA-Public Use
  Company Number: US-BIOGENIDEC-2010BI008091

PATIENT
  Age: 51 Year
  Sex: Female

DRUGS (3)
  1. AVONEX [Suspect]
     Indication: MULTIPLE SCLEROSIS
     Route: 030
     Dates: start: 19960601
  2. AVONEX [Suspect]
     Route: 030
  3. NAPROSYN [Concomitant]
     Indication: ARTHRITIS
     Dates: start: 19950101

REACTIONS (4)
  - DEPRESSED MOOD [None]
  - FEAR [None]
  - INJECTION SITE PAIN [None]
  - SENSATION OF HEAVINESS [None]
